FAERS Safety Report 24763483 (Version 1)
Quarter: 2024Q4

REPORT INFORMATION
  Report Type: Report from Study
  Country: CO (occurrence: CO)
  Receive Date: 20241223
  Receipt Date: 20241223
  Transmission Date: 20250115
  Serious: Yes (Death, Other)
  Sender: ABBVIE
  Company Number: CO-ABBVIE-6058002

PATIENT
  Age: 63 Year
  Sex: Male
  Weight: 70 kg

DRUGS (1)
  1. VENCLEXTA [Suspect]
     Active Substance: VENETOCLAX
     Indication: Acute myeloid leukaemia
     Dosage: FORM STRENGTH UNITS: 100 MILLIGRAM
     Route: 048
     Dates: start: 20240717, end: 20241106

REACTIONS (2)
  - Cerebrovascular accident [Fatal]
  - Complications of bone marrow transplant [Unknown]

NARRATIVE: CASE EVENT DATE: 20241101
